FAERS Safety Report 6059798-1 (Version None)
Quarter: 2009Q1

REPORT INFORMATION
  Report Type: 
  Country: None (occurrence: None)
  Receive Date: 20090130
  Receipt Date: 20080618
  Transmission Date: 20090719
  Serious: No
  Sender: FDA-Public Use
  Company Number: US-ABBOTT-08P-163-0458221-00

PATIENT
  Sex: Male

DRUGS (3)
  1. LUPRON DEPOT [Suspect]
     Indication: PROSTATE CANCER
     Dates: start: 20060101
  2. LUPRON DEPOT [Suspect]
  3. LUPRON DEPOT [Suspect]
     Dates: start: 20070901

REACTIONS (12)
  - ABDOMINAL PAIN UPPER [None]
  - ASTHENIA [None]
  - DIARRHOEA [None]
  - FLATULENCE [None]
  - GAIT DISTURBANCE [None]
  - HOT FLUSH [None]
  - LIBIDO DECREASED [None]
  - MUSCULAR WEAKNESS [None]
  - NAUSEA [None]
  - PAIN IN EXTREMITY [None]
  - PROSTATIC SPECIFIC ANTIGEN INCREASED [None]
  - THROAT IRRITATION [None]
